FAERS Safety Report 9786447 (Version 5)
Quarter: 2016Q2

REPORT INFORMATION
  Report Type: Spontaneous
  Country: US (occurrence: US)
  Receive Date: 20131227
  Receipt Date: 20160506
  Transmission Date: 20160815
  Serious: Yes (Hospitalization, Other)
  Sender: FDA-Public Use
  Company Number: US-009507513-1312USA009122

PATIENT
  Sex: Female
  Weight: 57.14 kg

DRUGS (4)
  1. CALCIUM (UNSPECIFIED) [Concomitant]
     Active Substance: CALCIUM
     Indication: PRODUCT USED FOR UNKNOWN INDICATION
     Dosage: 1000 MG, QD
     Route: 065
     Dates: start: 1995
  2. ALENDRONATE SODIUM. [Suspect]
     Active Substance: ALENDRONATE SODIUM
     Indication: OSTEOPOROSIS
     Dosage: 70 MG, QW
     Route: 048
     Dates: start: 200802, end: 201011
  3. VITAMINS (UNSPECIFIED) [Concomitant]
     Active Substance: VITAMINS
     Indication: PRODUCT USED FOR UNKNOWN INDICATION
     Dosage: 1 DF, QD
     Route: 065
     Dates: start: 1995
  4. FOSAMAX [Suspect]
     Active Substance: ALENDRONATE SODIUM
     Indication: OSTEOPOROSIS
     Dosage: 70 MG, QW
     Route: 048
     Dates: start: 200405, end: 200801

REACTIONS (27)
  - Lipoma [Unknown]
  - Osteopenia [Unknown]
  - Spinal operation [Unknown]
  - Sinus bradycardia [Unknown]
  - Pyrexia [Unknown]
  - Gallbladder operation [Unknown]
  - Femur fracture [Unknown]
  - Type 2 diabetes mellitus [Unknown]
  - Osteoarthritis [Unknown]
  - Infection [Unknown]
  - Hypoaesthesia [Unknown]
  - Hypertension [Unknown]
  - Anaemia [Unknown]
  - Mental status changes [Unknown]
  - Femur fracture [Unknown]
  - Femur fracture [Unknown]
  - Constipation [Unknown]
  - Cataract [Unknown]
  - Compression fracture [Unknown]
  - Hyperuricaemia [Unknown]
  - Anaemia postoperative [Unknown]
  - Fall [Unknown]
  - Back pain [Not Recovered/Not Resolved]
  - Fall [Unknown]
  - Pain management [Unknown]
  - Lumbar radiculopathy [Unknown]
  - Fall [Unknown]

NARRATIVE: CASE EVENT DATE: 2007
